FAERS Safety Report 25829803 (Version 1)
Quarter: 2025Q3

REPORT INFORMATION
  Report Type: Spontaneous
  Country: EU (occurrence: EU)
  Receive Date: 20250922
  Receipt Date: 20250922
  Transmission Date: 20251020
  Serious: Yes (Hospitalization)
  Sender: AUROBINDO
  Company Number: EU-RECORDATI-2025006239

PATIENT
  Age: 77 Year
  Sex: Male
  Weight: 74 kg

DRUGS (6)
  1. ALLOPURINOL [Suspect]
     Active Substance: ALLOPURINOL
     Indication: Product used for unknown indication
     Dosage: 200 MILLIGRAM, QD, STARTED MORE THAN 5 YEARS AGO
     Route: 048
  2. ELIGARD [Suspect]
     Active Substance: LEUPROLIDE ACETATE
     Indication: Prostate cancer
     Route: 058
     Dates: start: 20250805
  3. TAHOR [Concomitant]
     Active Substance: ATORVASTATIN CALCIUM
     Indication: Product used for unknown indication
     Dosage: 200 MILLIGRAM, QD (STARTED MORE THAN 5 YEARS AGO)
     Route: 048
  4. ENALAPRIL [Concomitant]
     Active Substance: ENALAPRIL
     Indication: Product used for unknown indication
     Dosage: 20 MILLIGRAM, BID (STARTED MORE THAN 5 YEARS AGO)
     Route: 048
  5. KARDEGIC [Concomitant]
     Active Substance: ASPIRIN DL-LYSINE
     Indication: Product used for unknown indication
     Dosage: 160 MILLIGRAM, QD (STARTED MORE THAN 5 YEARS AGO)
     Route: 048
  6. ESIDREX [Concomitant]
     Active Substance: HYDROCHLOROTHIAZIDE
     Indication: Product used for unknown indication
     Dosage: 25 MILLIGRAM, QD (STARTED MORE THAN 5 YEARS AGO)
     Route: 048

REACTIONS (6)
  - Blister [Unknown]
  - Heart rate increased [Unknown]
  - Eosinophilia [Unknown]
  - Hepatic function abnormal [Unknown]
  - Asthenia [Unknown]
  - Hypotension [Unknown]

NARRATIVE: CASE EVENT DATE: 20250823
